FAERS Safety Report 23054980 (Version 2)
Quarter: 2023Q4

REPORT INFORMATION
  Report Type: Spontaneous
  Country: BR (occurrence: BR)
  Receive Date: 20231011
  Receipt Date: 20231016
  Transmission Date: 20240110
  Serious: Yes (Life-Threatening, Hospitalization)
  Sender: FDA-Public Use
  Company Number: BR-TAKEDA-2023TUS097451

PATIENT
  Sex: Female

DRUGS (1)
  1. DEXILANT [Suspect]
     Active Substance: DEXLANSOPRAZOLE
     Indication: Oesophagitis
     Dosage: UNK
     Route: 065

REACTIONS (6)
  - Adverse event [Unknown]
  - Malaise [Unknown]
  - Off label use [Unknown]
  - Bedridden [Unknown]
  - Pyrexia [Unknown]
  - Chills [Unknown]
